FAERS Safety Report 14625891 (Version 2)
Quarter: 2018Q2

REPORT INFORMATION
  Report Type: Report from Study
  Country: BR (occurrence: BR)
  Receive Date: 20180312
  Receipt Date: 20180408
  Transmission Date: 20180711
  Serious: Yes (Other)
  Sender: FDA-Public Use
  Company Number: BR-ROCHE-2081845

PATIENT
  Sex: Female
  Weight: 64 kg

DRUGS (1)
  1. ACTEMRA [Suspect]
     Active Substance: TOCILIZUMAB
     Indication: RHEUMATOID ARTHRITIS
     Route: 042

REACTIONS (11)
  - Infusion site injury [Unknown]
  - Vomiting [Unknown]
  - Vein rupture [Unknown]
  - Papule [Unknown]
  - Malaise [Unknown]
  - Diarrhoea [Unknown]
  - Bone formation increased [Unknown]
  - Erythema [Unknown]
  - Pain [Unknown]
  - Blister [Unknown]
  - Pruritus [Unknown]
